FAERS Safety Report 6070024-X (Version None)
Quarter: 2009Q1

REPORT INFORMATION
  Report Type: 
  Country: None (occurrence: None)
  Receive Date: 20090209
  Receipt Date: 20090128
  Transmission Date: 20090719
  Serious: Yes (Hospitalization, Disabling, Other)
  Sender: FDA-Public Use
  Company Number: PHHY2009BR03184

PATIENT
  Sex: Female

DRUGS (3)
  1. TEGRETOL [Suspect]
     Indication: BACK PAIN
     Dosage: 200 MG, 2 TABLETS/DAY
     Route: 048
     Dates: start: 20081017
  2. DIOVAN HCT [Suspect]
     Indication: HYPERTENSION
     Dosage: 1 DF, QD
     Route: 048
     Dates: end: 20081019
  3. GABAPENTIN [Concomitant]
     Dosage: 300 MG, 2 TABLET/DAY

REACTIONS (7)
  - BLOOD PRESSURE FLUCTUATION [None]
  - DISORIENTATION [None]
  - HYPERTENSIVE ENCEPHALOPATHY [None]
  - MALAISE [None]
  - PALLOR [None]
  - SEDATION [None]
  - WALKING DISABILITY [None]
